FAERS Safety Report 5714719-3 (Version None)
Quarter: 2008Q2

REPORT INFORMATION
  Report Type: 
  Country: None (occurrence: None)
  Receive Date: 20080423
  Receipt Date: 19900313
  Transmission Date: 20081010
  Serious: Yes (Death)
  Sender: FDA-Public Use
  Company Number: NL-ROCHE-900190105001

PATIENT
  Age: 93 Year
  Sex: Female

DRUGS (9)
  1. CEFTRIAXONE [Suspect]
     Indication: INFECTION PROPHYLAXIS
     Route: 042
     Dates: start: 19891213, end: 19891213
  2. MONOTRIM [Concomitant]
     Route: 048
     Dates: start: 19891208, end: 19891223
  3. KONAKION [Concomitant]
     Route: 065
  4. LANOXIN [Concomitant]
     Route: 048
     Dates: start: 19891208, end: 19891221
  5. LASIX [Concomitant]
     Route: 048
     Dates: start: 19891208, end: 19891221
  6. BISACODYL [Concomitant]
     Route: 065
  7. DUPHALAC [Concomitant]
     Route: 065
  8. MOGADON [Concomitant]
     Route: 048
     Dates: start: 19891208, end: 19891221
  9. POTASSIUM CHLORIDE [Concomitant]
     Route: 048
     Dates: start: 19891208, end: 19891221

REACTIONS (1)
  - DEATH [None]
